FAERS Safety Report 21656730 (Version 2)
Quarter: 2023Q1

REPORT INFORMATION
  Report Type: Spontaneous
  Country: US (occurrence: US)
  Receive Date: 20221129
  Receipt Date: 20230228
  Transmission Date: 20230417
  Serious: No
  Sender: FDA-Public Use
  Company Number: US-SA-SAC20221125001265

PATIENT
  Age: 23 Year
  Sex: Female

DRUGS (1)
  1. DUPIXENT [Suspect]
     Active Substance: DUPILUMAB
     Indication: Dermatitis atopic
     Dosage: 300 MG;FREQUENCY: OTHER
     Route: 058
     Dates: start: 20221015

REACTIONS (3)
  - Headache [Unknown]
  - Eye infection [Unknown]
  - Dry eye [Unknown]

NARRATIVE: CASE EVENT DATE: 20221025
